FAERS Safety Report 5672035-2 (Version None)
Quarter: 2008Q1

REPORT INFORMATION
  Report Type: 
  Country: None (occurrence: None)
  Receive Date: 20080317
  Receipt Date: 20080317
  Transmission Date: 20080703
  Serious: Yes (Hospitalization)
  Sender: FDA-Public Use
  Company Number: None

PATIENT
  Sex: Male
  Weight: 73.1 kg

DRUGS (2)
  1. GLEEVEC [Suspect]
     Indication: NON-SMALL CELL LUNG CANCER RECURRENT
     Dosage: 4000MG QD PO
     Route: 048
     Dates: start: 20070324, end: 20080128
  2. DOCETAXEL [Suspect]
     Indication: NON-SMALL CELL LUNG CANCER RECURRENT
     Dosage: 25MG/M2 QWEEKLY X 3 IV
     Route: 042
     Dates: start: 20070924, end: 20080124

REACTIONS (4)
  - ATRIAL FIBRILLATION [None]
  - DYSPNOEA [None]
  - PLEURAL EFFUSION [None]
  - PNEUMOTHORAX [None]
